FAERS Safety Report 5053985-7 (Version None)
Quarter: 2006Q2

REPORT INFORMATION
  Report Type: 
  Country: None (occurrence: None)
  Receive Date: 20060614
  Receipt Date: 20060515
  Transmission Date: 20061013
  Serious: Yes (Other)
  Sender: FDA-Public Use
  Company Number: 448050

PATIENT
  Age: 75 Year
  Sex: Female
  Weight: 62.6 kg

DRUGS (4)
  1. BONIVA [Suspect]
     Indication: OSTEOPOROSIS POSTMENOPAUSAL
     Dosage: 150 MG 1 PER MONTH ORAL
     Route: 048
     Dates: start: 20060315, end: 20060515
  2. CALCIUM (CALCIUM) [Concomitant]
  3. LIPITOR [Concomitant]
  4. ESTRADIOL [Concomitant]

REACTIONS (2)
  - ARRHYTHMIA [None]
  - EXTRASYSTOLES [None]
